FAERS Safety Report 10758758 (Version 1)
Quarter: 2015Q1

REPORT INFORMATION
  Report Type: Spontaneous
  Country: US (occurrence: None)
  Receive Date: 20150123
  Receipt Date: 20150123
  Transmission Date: 20150721
  Serious: No
  Sender: FDA-Public Use
  Company Number: TPA2013A01719

PATIENT
  Age: 74 Year
  Sex: Female
  Weight: 99.5 kg

DRUGS (16)
  1. LANTUS [Concomitant]
     Active Substance: INSULIN GLARGINE
  2. VENOFER (SACCHARATED IRON OXIDE) [Concomitant]
  3. LOPERAMIDE [Concomitant]
     Active Substance: LOPERAMIDE
  4. EPOGEN [Concomitant]
     Active Substance: ERYTHROPOIETIN
  5. INDERAL [Concomitant]
     Active Substance: PROPRANOLOL HYDROCHLORIDE
  6. AMLODIPINE [Concomitant]
     Active Substance: AMLODIPINE BESYLATE
  7. DIALYVITE (ASCORBIC ACID, PYRIDOXINE HYDROCHLORIDE, BIOTIN, FOLIC ACID, THIAMINE, NICOTINIC ACID, PANTOTHENIC ACID, RIBOFLAVIN, MECOBALAMIN) [Concomitant]
  8. ASPIRIN. [Concomitant]
     Active Substance: ASPIRIN
  9. BENADRYL [Concomitant]
     Active Substance: DIPHENHYDRAMINE HYDROCHLORIDE
  10. OMONTYS [Suspect]
     Active Substance: PEGINESATIDE
     Indication: NEPHROGENIC ANAEMIA
     Route: 042
     Dates: start: 20130208, end: 20130208
  11. HEPARIN [Concomitant]
     Active Substance: HEPARIN SODIUM
  12. TRICOR [Concomitant]
     Active Substance: FENOFIBRATE
  13. ZEMPLAR [Concomitant]
     Active Substance: PARICALCITOL
  14. FLUOXETINE [Concomitant]
     Active Substance: FLUOXETINE\FLUOXETINE HYDROCHLORIDE
  15. REQUIP [Concomitant]
     Active Substance: ROPINIROLE HYDROCHLORIDE
  16. LORAZEPAM. [Concomitant]
     Active Substance: LORAZEPAM

REACTIONS (7)
  - Nausea [None]
  - Drug hypersensitivity [None]
  - Erythema [None]
  - Flushing [None]
  - Lip swelling [None]
  - Malaise [None]
  - Urticaria [None]

NARRATIVE: CASE EVENT DATE: 20130208
